FAERS Safety Report 5902704-8 (Version None)
Quarter: 2008Q3

REPORT INFORMATION
  Report Type: 
  Country: None (occurrence: None)
  Receive Date: 20080929
  Receipt Date: 20080929
  Transmission Date: 20090109
  Serious: Yes (Other)
  Sender: FDA-Public Use
  Company Number: None

PATIENT
  Sex: Female

DRUGS (1)
  1. RISPERIDONE [Suspect]
     Indication: AUTISM
     Dosage: III MG PO QD - I PM
     Dates: start: 20070101

REACTIONS (1)
  - AFFECTIVE DISORDER [None]
